FAERS Safety Report 13737756 (Version 1)
Quarter: 2017Q3

REPORT INFORMATION
  Report Type: Report from Study
  Country: US (occurrence: US)
  Receive Date: 20170710
  Receipt Date: 20170710
  Transmission Date: 20171127
  Serious: No
  Sender: FDA-Public Use
  Company Number: US-SAOL THERAPEUTICS-2016SAO00720

PATIENT
  Age: 57 Year
  Sex: Male

DRUGS (6)
  1. BUPIVACAINE. [Suspect]
     Active Substance: BUPIVACAINE
     Dosage: 5.251 MG, \DAY
     Route: 037
     Dates: start: 20150916, end: 20151006
  2. MORPHINE [Suspect]
     Active Substance: MORPHINE
     Dosage: 1.7064 MG, \DAY
     Route: 037
     Dates: start: 20150916, end: 20151006
  3. COMPOUNDED BACLOFEN [Suspect]
     Active Substance: BACLOFEN
     Dosage: 278.3 ?G, \DAY
     Route: 037
     Dates: start: 20150916, end: 20151006
  4. BUPIVACAINE. [Suspect]
     Active Substance: BUPIVACAINE
     Dosage: 4.794 MG, \DAY
     Route: 037
     Dates: start: 20151006
  5. MORPHINE [Suspect]
     Active Substance: MORPHINE
     Dosage: 1.5580 MG, \DAY
     Route: 037
     Dates: start: 20151006
  6. COMPOUNDED BACLOFEN [Suspect]
     Active Substance: BACLOFEN
     Dosage: 254.1 ?G, \DAY
     Route: 037
     Dates: start: 20151006

REACTIONS (1)
  - Hyperaesthesia [Not Recovered/Not Resolved]

NARRATIVE: CASE EVENT DATE: 20151006
